FAERS Safety Report 15449427 (Version 1)
Quarter: 2018Q4

REPORT INFORMATION
  Report Type: Spontaneous
  Country: AU (occurrence: AU)
  Receive Date: 20181001
  Receipt Date: 20181001
  Transmission Date: 20190204
  Serious: Yes (Other)
  Sender: FDA-Public Use
  Company Number: AU-ROCHE-2189939

PATIENT
  Age: 70 Year
  Sex: Male

DRUGS (14)
  1. VINBLASTINE [Suspect]
     Active Substance: VINBLASTINE
     Indication: PROSTATE CANCER METASTATIC
  2. VINCRISTINE [Suspect]
     Active Substance: VINCRISTINE
     Indication: B-CELL LYMPHOMA
     Route: 065
  3. VINCRISTINE [Suspect]
     Active Substance: VINCRISTINE
     Indication: PROSTATE CANCER METASTATIC
  4. RITUXIMAB. [Suspect]
     Active Substance: RITUXIMAB
     Indication: PROSTATE CANCER METASTATIC
  5. DOXORUBICIN [Suspect]
     Active Substance: DOXORUBICIN
     Indication: B-CELL LYMPHOMA
     Route: 065
  6. RITUXIMAB. [Suspect]
     Active Substance: RITUXIMAB
     Indication: B-CELL LYMPHOMA
     Route: 042
  7. CYCLOPHOSPHAMIDE. [Suspect]
     Active Substance: CYCLOPHOSPHAMIDE
     Indication: PROSTATE CANCER METASTATIC
  8. PREDNISOLONE. [Suspect]
     Active Substance: PREDNISOLONE
     Indication: B-CELL LYMPHOMA
     Route: 065
  9. PREDNISOLONE. [Suspect]
     Active Substance: PREDNISOLONE
     Indication: PROSTATE CANCER METASTATIC
  10. DOXORUBICIN [Suspect]
     Active Substance: DOXORUBICIN
     Indication: PROSTATE CANCER METASTATIC
  11. VINBLASTINE [Suspect]
     Active Substance: VINBLASTINE
     Indication: B-CELL LYMPHOMA
     Route: 065
  12. CYCLOPHOSPHAMIDE. [Suspect]
     Active Substance: CYCLOPHOSPHAMIDE
     Indication: B-CELL LYMPHOMA
     Route: 065
  13. ETOPOSIDE. [Suspect]
     Active Substance: ETOPOSIDE
     Indication: PROSTATE CANCER METASTATIC
  14. ETOPOSIDE. [Suspect]
     Active Substance: ETOPOSIDE
     Indication: B-CELL LYMPHOMA
     Route: 065

REACTIONS (1)
  - Cytopenia [Unknown]
